FAERS Safety Report 14965256 (Version 2)
Quarter: 2018Q2

REPORT INFORMATION
  Report Type: Report from Study
  Country: US (occurrence: US)
  Receive Date: 20180601
  Receipt Date: 20180625
  Transmission Date: 20180711
  Serious: Yes (Death, Hospitalization, Disabling)
  Sender: FDA-Public Use
  Company Number: US-ACTELION-A-NJ2018-171997

PATIENT
  Age: 67 Year
  Sex: Female

DRUGS (4)
  1. ADCIRCA [Concomitant]
     Active Substance: TADALAFIL
     Dosage: 20 MG, QD
     Route: 048
     Dates: start: 20150608, end: 20180614
  2. ADCIRCA [Concomitant]
     Active Substance: TADALAFIL
     Dosage: 40 MG, QD
     Dates: start: 2015, end: 20180614
  3. OPSUMIT [Suspect]
     Active Substance: MACITENTAN
     Indication: PULMONARY ARTERIAL HYPERTENSION
     Dosage: 10 MG, QD
     Route: 048
     Dates: start: 20150223
  4. REMODULIN [Concomitant]
     Active Substance: TREPROSTINIL
     Dosage: 70 NG/KG, PER MIN
     Route: 042
     Dates: start: 20140324, end: 20180614

REACTIONS (4)
  - Hepatic failure [Not Recovered/Not Resolved]
  - Pulmonary arterial hypertension [Fatal]
  - Intra-abdominal fluid collection [Not Recovered/Not Resolved]
  - Respiration abnormal [Recovered/Resolved]

NARRATIVE: CASE EVENT DATE: 20180428
